FAERS Safety Report 5227265-0 (Version None)
Quarter: 2007Q1

REPORT INFORMATION
  Report Type: 
  Country: None (occurrence: None)
  Receive Date: 20070202
  Receipt Date: 20070131
  Transmission Date: 20070707
  Serious: Yes (Life-Threatening)
  Sender: FDA-Public Use
  Company Number: FR-BRISTOL-MYERS SQUIBB COMPANY-13664610

PATIENT
  Age: 69 Year
  Sex: Female

DRUGS (7)
  1. CARBOPLATIN [Suspect]
     Indication: CHEMOTHERAPY
     Route: 042
     Dates: start: 20061031, end: 20061031
  2. DOXORUBICIN HCL [Suspect]
     Indication: CHEMOTHERAPY
     Route: 042
     Dates: start: 20061031, end: 20061031
  3. DOXORUBICIN HCL [Suspect]
     Route: 042
     Dates: start: 20061031, end: 20061031
  4. APREPITANT [Suspect]
     Route: 048
     Dates: start: 20061031, end: 20061102
  5. NEULASTA [Suspect]
     Route: 058
     Dates: start: 20061101, end: 20061101
  6. ZOFRAN [Suspect]
     Route: 048
     Dates: start: 20061102, end: 20061105
  7. METOCLOPRAMIDE [Concomitant]

REACTIONS (2)
  - APHAGIA [None]
  - PHARYNGEAL OEDEMA [None]
